FAERS Safety Report 5570724-1 (Version None)
Quarter: 2007Q4

REPORT INFORMATION
  Report Type: 
  Country: None (occurrence: None)
  Receive Date: 20071221
  Receipt Date: 20071220
  Transmission Date: 20080405
  Serious: Yes (Life-Threatening, Other)
  Sender: FDA-Public Use
  Company Number: GB-BRISTOL-MYERS SQUIBB COMPANY-13991658

PATIENT
  Age: 42 Year
  Sex: Female

DRUGS (6)
  1. TRAZODONE HCL [Suspect]
     Indication: DEPRESSION
     Dosage: DURATION OF THERAPY- 8, 100 MONTHS
     Route: 048
     Dates: start: 20060829, end: 20070502
  2. ALVERINE CITRATE [Concomitant]
     Dates: start: 20070103
  3. CO-CODAMOL [Concomitant]
  4. DULOXETINE HCL [Concomitant]
     Dates: start: 20070129
  5. FERROUS SULFATE TAB [Concomitant]
     Dates: start: 20070426
  6. NORMACOL PLUS [Concomitant]
     Dates: start: 20060129

REACTIONS (3)
  - ELECTROCARDIOGRAM CHANGE [None]
  - FATIGUE [None]
  - MYALGIA [None]
